FAERS Safety Report 22183512 (Version 1)
Quarter: 2023Q2

REPORT INFORMATION
  Report Type: Spontaneous
  Country: None (occurrence: GB)
  Receive Date: 20230406
  Receipt Date: 20230406
  Transmission Date: 20230721
  Serious: Yes (Other)
  Sender: FDA-Public Use
  Company Number: GB-Air Products and Chemicals, Inc. -2140017

PATIENT
  Age: 8 Year
  Sex: Female
  Weight: 25.7 kg

DRUGS (1)
  1. OXYGEN [Suspect]
     Active Substance: OXYGEN
     Dates: start: 20110117, end: 20110117

REACTIONS (2)
  - Swelling face [None]
  - Urticaria [None]
